FAERS Safety Report 20651448 (Version 1)
Quarter: 2022Q1

REPORT INFORMATION
  Report Type: Spontaneous
  Country: JP (occurrence: JP)
  Receive Date: 20220330
  Receipt Date: 20220330
  Transmission Date: 20220424
  Serious: Yes (Hospitalization, Other)
  Sender: FDA-Public Use
  Company Number: JP-NOVARTISPH-NVSJ2022JP005077

PATIENT
  Age: 59 Year
  Sex: Female

DRUGS (1)
  1. ANASTROZOLE [Suspect]
     Active Substance: ANASTROZOLE
     Indication: Breast cancer
     Dosage: UNK
     Route: 048

REACTIONS (4)
  - Interstitial lung disease [Recovering/Resolving]
  - Dyspnoea [Unknown]
  - Pyrexia [Unknown]
  - Oxygen saturation decreased [Unknown]
